FAERS Safety Report 9981767 (Version 1)
Quarter: 2014Q1

REPORT INFORMATION
  Report Type: Report from Study
  Country: US (occurrence: US)
  Receive Date: 20140307
  Receipt Date: 20140307
  Transmission Date: 20141002
  Serious: No
  Sender: FDA-Public Use
  Company Number: US-ABBVIE-13P-163-1181708-00

PATIENT
  Age: 70 Year
  Sex: Female

DRUGS (15)
  1. HUMIRA [Suspect]
     Indication: RHEUMATOID ARTHRITIS
     Dates: start: 201302
  2. DOCUSATE SODIUM [Concomitant]
     Indication: CONSTIPATION PROPHYLAXIS
  3. VITAMIN C [Concomitant]
     Indication: IMMUNE SYSTEM DISORDER
  4. GABAPENTIN [Concomitant]
     Indication: NEURALGIA
  5. GLUCOSAMINE SUPPLEMENT [Concomitant]
     Indication: ARTHROPATHY
  6. AZELASTINE [Concomitant]
     Indication: HYPERSENSITIVITY
     Dosage: SPRAY
     Route: 045
  7. ZYRTEC [Concomitant]
     Indication: HYPERSENSITIVITY
  8. QVAR [Concomitant]
     Indication: HYPERSENSITIVITY
     Route: 055
  9. FOLIC ACID [Concomitant]
     Indication: VITAMIN SUPPLEMENTATION
  10. VITAMIN B12 [Concomitant]
     Indication: VITAMIN SUPPLEMENTATION
  11. PREDNISONE [Concomitant]
     Indication: ARTHRITIS
  12. LORTAB [Concomitant]
     Indication: ARTHRALGIA
     Dosage: 10/500 MG
  13. GENERIC FOSAMAX [Concomitant]
     Indication: OSTEOPOROSIS
  14. AMLODOPINE [Concomitant]
     Indication: HYPERTENSION
  15. CALTRATE WITH VITAMIN D [Concomitant]
     Indication: BONE DISORDER

REACTIONS (3)
  - Drug dose omission [Recovered/Resolved]
  - Memory impairment [Unknown]
  - Stress [Unknown]
